FAERS Safety Report 8510983-6 (Version None)
Quarter: 2012Q3

REPORT INFORMATION
  Report Type: 
  Country: None (occurrence: None)
  Receive Date: 20120703
  Receipt Date: 20120621
  Transmission Date: 20120928
  Serious: Yes (Other)
  Sender: FDA-Public Use
  Company Number: AUR-APL-2012-02807

PATIENT
  Age: 6 Year
  Sex: Female

DRUGS (1)
  1. LEVETIRACETAM [Suspect]
     Indication: CONVULSION
     Dosage: DAILY (15 MG/KG), DAILY (53 MG/KG)

REACTIONS (2)
  - PARTIAL SEIZURES [None]
  - AUTISM [None]
